FAERS Safety Report 16361654 (Version 3)
Quarter: 2019Q3

REPORT INFORMATION
  Report Type: Spontaneous
  Country: JP (occurrence: JP)
  Receive Date: 20190528
  Receipt Date: 20190823
  Transmission Date: 20191004
  Serious: Yes (Death, Hospitalization, Other)
  Sender: FDA-Public Use
  Company Number: JP-ASTRAZENECA-2019SE56353

PATIENT
  Age: 21698 Day
  Sex: Female
  Weight: 56 kg

DRUGS (3)
  1. TAKECAB [Concomitant]
     Active Substance: VONOPRAZAN FUMURATE
     Dosage: DOSE UNKNOWN
     Route: 065
  2. IMFINZI [Suspect]
     Active Substance: DURVALUMAB
     Indication: NON-SMALL CELL LUNG CANCER
     Route: 041
     Dates: start: 20190109, end: 20190123
  3. E KEPPRA [Concomitant]
     Active Substance: LEVETIRACETAM
     Dosage: DOSE UNKNOWN
     Route: 065

REACTIONS (6)
  - Malignant neoplasm progression [Fatal]
  - Hepatic function abnormal [Unknown]
  - Lung disorder [Recovered/Resolved]
  - Metastases to central nervous system [Fatal]
  - Movement disorder [Fatal]
  - Somnolence [Fatal]

NARRATIVE: CASE EVENT DATE: 20190208
